FAERS Safety Report 11133077 (Version 2)
Quarter: 2015Q2

REPORT INFORMATION
  Report Type: Spontaneous
  Country: US (occurrence: US)
  Receive Date: 20150522
  Receipt Date: 20150615
  Transmission Date: 20150821
  Serious: Yes (Other)
  Sender: FDA-Public Use
  Company Number: US-JNJFOC-20150510234

PATIENT
  Age: 70 Year
  Sex: Female

DRUGS (2)
  1. REMICADE [Suspect]
     Active Substance: INFLIXIMAB
     Indication: PSORIATIC ARTHROPATHY
     Dosage: 1,2 HOURS INFUSION
     Route: 042
     Dates: start: 201411
  2. METHOTREXATE [Concomitant]
     Active Substance: METHOTREXATE
     Dosage: 6 PILLS 1 TIME A WEEK
     Route: 065
     Dates: start: 201411

REACTIONS (9)
  - Pancreatic carcinoma [Not Recovered/Not Resolved]
  - Sjogren^s syndrome [Recovering/Resolving]
  - Memory impairment [Not Recovered/Not Resolved]
  - Psoriatic arthropathy [Unknown]
  - Headache [Not Recovered/Not Resolved]
  - Hepatic cancer [Not Recovered/Not Resolved]
  - Nasal dryness [Not Recovered/Not Resolved]
  - Abdominal pain upper [Recovering/Resolving]
  - Muscle spasms [Unknown]

NARRATIVE: CASE EVENT DATE: 2015
